FAERS Safety Report 19008983 (Version 1)
Quarter: 2021Q1

REPORT INFORMATION
  Report Type: Spontaneous
  Country: US (occurrence: US)
  Receive Date: 20210315
  Receipt Date: 20210315
  Transmission Date: 20210420
  Serious: No
  Sender: FDA-Public Use
  Company Number: US-PFIZER INC-2021196043

PATIENT
  Age: 67 Year
  Sex: Female
  Weight: 48.99 kg

DRUGS (3)
  1. LISINOPRIL. [Concomitant]
     Active Substance: LISINOPRIL
     Dosage: 10 MG, 2X/DAY
     Route: 048
     Dates: start: 2011
  2. BOSULIF [Suspect]
     Active Substance: BOSUTINIB MONOHYDRATE
     Indication: LEUKAEMIA
     Dosage: 400 MG, DAILY [100MG; TAKE FOUR TABLET DAILY BY MOUTH   ]
     Route: 048
     Dates: start: 20210204
  3. LISINOPRIL. [Concomitant]
     Active Substance: LISINOPRIL
     Indication: BLOOD PRESSURE ABNORMAL
     Dosage: 10 MG, DAILY
     Route: 048

REACTIONS (1)
  - Hypertension [Unknown]
